FAERS Safety Report 23378688 (Version 1)
Quarter: 2024Q1

REPORT INFORMATION
  Report Type: Spontaneous
  Country: DE (occurrence: DE)
  Receive Date: 20240108
  Receipt Date: 20240108
  Transmission Date: 20240409
  Serious: Yes (Other)
  Sender: FDA-Public Use
  Company Number: DE-EMBRYOTOX-202211629

PATIENT
  Age: 1 Day
  Sex: Male
  Weight: 2.8 kg

DRUGS (3)
  1. VENLAFAXINE [Suspect]
     Active Substance: VENLAFAXINE HYDROCHLORIDE
     Indication: Anxiety disorder
     Dosage: 75 MILLIGRAM, QD, 75 [MG/D]
     Route: 064
     Dates: start: 20221022, end: 20230730
  2. FOSTER [Suspect]
     Active Substance: BECLOMETHASONE\FORMOTEROL
     Indication: Asthma
     Dosage: BID (TWICE DAILY ONE INHALATION, DOSAGE UNKNOWN)
     Route: 064
  3. OXYTOCIN [Suspect]
     Active Substance: OXYTOCIN
     Indication: Induced labour
     Dosage: UNK
     Route: 064

REACTIONS (2)
  - Small for dates baby [Recovered/Resolved]
  - Foetal exposure during pregnancy [Unknown]

NARRATIVE: CASE EVENT DATE: 20230701
